FAERS Safety Report 6358088-7 (Version None)
Quarter: 2009Q3

REPORT INFORMATION
  Report Type: 
  Country: None (occurrence: None)
  Receive Date: 20090916
  Receipt Date: 20090908
  Transmission Date: 20100115
  Serious: Yes (Hospitalization)
  Sender: FDA-Public Use
  Company Number: B0593418A

PATIENT
  Age: 74 Year
  Sex: Male

DRUGS (5)
  1. ROPINIROLE HYDROCHLORIDE [Suspect]
     Dosage: 12MG PER DAY
     Dates: start: 20050101, end: 20061101
  2. AZILECT [Suspect]
     Indication: PARKINSON'S DISEASE
     Dosage: 1MG PER DAY
     Route: 048
     Dates: start: 20050101
  3. MADOPAR [Concomitant]
     Indication: PARKINSON'S DISEASE
     Dosage: 1250MG PER DAY
     Route: 048
     Dates: start: 19950101
  4. MADOPAR [Concomitant]
     Dosage: 125MG PER DAY
     Route: 048
     Dates: start: 20000101
  5. TAMSULOSIN HCL [Concomitant]
     Indication: URINARY RETENTION
     Dosage: 400MCG PER DAY
     Route: 048

REACTIONS (6)
  - ABNORMAL DREAMS [None]
  - DYSKINESIA [None]
  - FALL [None]
  - HALLUCINATION [None]
  - INSOMNIA [None]
  - WRIST FRACTURE [None]
